FAERS Safety Report 25143238 (Version 1)
Quarter: 2025Q2

REPORT INFORMATION
  Report Type: Spontaneous
  Country: US (occurrence: US)
  Receive Date: 20250401
  Receipt Date: 20250401
  Transmission Date: 20250717
  Serious: Yes (Other)
  Sender: AMNEAL
  Company Number: US-AMNEAL PHARMACEUTICALS-2025-AMRX-01112

PATIENT
  Age: 76 Year
  Sex: Male

DRUGS (1)
  1. DAPSONE [Suspect]
     Active Substance: DAPSONE
     Indication: Antifungal prophylaxis
     Route: 065

REACTIONS (3)
  - Cardiogenic shock [Recovering/Resolving]
  - Lactic acidosis [Recovered/Resolved]
  - Methaemoglobinaemia [Recovering/Resolving]
